FAERS Safety Report 21782603 (Version 2)
Quarter: 2023Q1

REPORT INFORMATION
  Report Type: Spontaneous
  Country: FR (occurrence: FR)
  Receive Date: 20221227
  Receipt Date: 20230104
  Transmission Date: 20230417
  Serious: Yes (Other)
  Sender: FDA-Public Use
  Company Number: None

PATIENT
  Age: 12 Year
  Sex: Female

DRUGS (18)
  1. IRINOTECAN [Suspect]
     Active Substance: IRINOTECAN
     Indication: Optic glioma
     Dosage: 172 MILLIGRAM, MONTHLY
     Route: 042
     Dates: start: 201304, end: 201312
  2. CARBOPLATIN [Suspect]
     Active Substance: CARBOPLATIN
     Indication: Optic glioma
     Dosage: 123 MILLIGRAM, Q3W
     Route: 042
     Dates: start: 200906, end: 201004
  3. CARBOPLATIN [Suspect]
     Active Substance: CARBOPLATIN
     Dosage: 23 MILLIGRAM, QW
     Route: 042
     Dates: start: 200906, end: 201004
  4. VINBLASTINE SULFATE [Suspect]
     Active Substance: VINBLASTINE SULFATE
     Indication: Optic glioma
     Dosage: 2.2 MILLIGRAM, QW
     Route: 042
     Dates: start: 201312, end: 201411
  5. ONCOVIN [Suspect]
     Active Substance: VINCRISTINE SULFATE
     Indication: Optic glioma
     Dosage: 0.3 MILLIGRAM, QW
     Route: 042
     Dates: start: 200906, end: 201012
  6. ONCOVIN [Suspect]
     Active Substance: VINCRISTINE SULFATE
     Dosage: 4 MILLIGRAM, MONTHLY
     Route: 042
     Dates: start: 201806, end: 201903
  7. CYCLOPHOSPHAMIDE [Suspect]
     Active Substance: CYCLOPHOSPHAMIDE
     Indication: Optic glioma
     Dosage: 1500 MILLIGRAM/SQ. METER, MONTHLY
     Route: 042
     Dates: start: 201004, end: 201012
  8. NAVELBINE [Suspect]
     Active Substance: VINORELBINE TARTRATE
     Indication: Optic glioma
     Dosage: 200 MILLIGRAM, MONTHLY
     Route: 048
     Dates: start: 201609, end: 201703
  9. COBIMETINIB [Suspect]
     Active Substance: COBIMETINIB
     Indication: Optic glioma
     Dosage: 5.5 MILLILITER, QD
     Route: 048
     Dates: start: 201706, end: 201708
  10. DECAPEPTYL (ACETATE) [Suspect]
     Active Substance: TRIPTORELIN ACETATE
     Indication: Precocious puberty
     Dosage: 3 MILLIGRAM, MONTHLY
     Route: 058
     Dates: start: 201705, end: 201909
  11. PROCARBAZINE [Suspect]
     Active Substance: PROCARBAZINE
     Indication: Optic glioma
     Dosage: 296 MILLIGRAM, MONTHLY
     Route: 048
     Dates: start: 201806, end: 201903
  12. LOMUSTINE [Suspect]
     Active Substance: LOMUSTINE
     Indication: Optic glioma
     Dosage: 168 MILLIGRAM, MONTHLY
     Route: 048
     Dates: start: 201806, end: 201903
  13. KEPPRA [Suspect]
     Active Substance: LEVETIRACETAM
     Indication: Seizure prophylaxis
     Dosage: 1 GRAM, QD
     Route: 048
     Dates: start: 201903, end: 202110
  14. AVASTIN [Suspect]
     Active Substance: BEVACIZUMAB
     Indication: Optic glioma
     Dosage: 300 MILLIGRAM, MONTHLY
     Route: 042
     Dates: start: 201304, end: 201312
  15. THIOGUANINE [Suspect]
     Active Substance: THIOGUANINE
     Indication: Optic glioma
     Dosage: 480 MILLIGRAM, MONTHLY
     Route: 048
     Dates: start: 201806, end: 201903
  16. VINBLASTINE SULFATE [Suspect]
     Active Substance: VINBLASTINE SULFATE
     Indication: Optic glioma
     Dosage: 6 MILLIGRAM/SQ. METER, QW
     Route: 042
     Dates: start: 201204, end: 201304
  17. CISPLATIN [Suspect]
     Active Substance: CISPLATIN
     Indication: Optic glioma
     Dosage: 30 MILLIGRAM/SQ. METER, MONTHLY
     Route: 042
     Dates: start: 201004, end: 201012
  18. NILOTINIB [Suspect]
     Active Substance: NILOTINIB
     Indication: Optic glioma
     Dosage: 150 MILLIGRAM, QD
     Route: 048
     Dates: start: 201312, end: 201411

REACTIONS (3)
  - Type 2 diabetes mellitus [Not Recovered/Not Resolved]
  - Product use in unapproved indication [Unknown]
  - Off label use [Unknown]

NARRATIVE: CASE EVENT DATE: 20210420
